FAERS Safety Report 7462092-5 (Version None)
Quarter: 2011Q2

REPORT INFORMATION
  Report Type: 
  Country: None (occurrence: None)
  Receive Date: 20110427
  Receipt Date: 20110413
  Transmission Date: 20111010
  Serious: Yes (Hospitalization, Other)
  Sender: FDA-Public Use
  Company Number: 2011PL000050

PATIENT
  Age: 61 Year
  Sex: Female
  Weight: 102.5129 kg

DRUGS (8)
  1. TOPROL-XL [Concomitant]
  2. SOLIFENACIN SUCCINATE [Concomitant]
  3. LOTRONEX [Suspect]
     Indication: IRRITABLE BOWEL SYNDROME
     Dosage: 0.5 MG;QD;PO
     Route: 048
     Dates: start: 20090601, end: 20110308
  4. DESVENLAFAXIN [Concomitant]
  5. LISINOPRIL [Concomitant]
  6. BUSPAR [Concomitant]
  7. ESOMEPRAZOLE MAGNESIUM [Concomitant]
  8. SPIRONOLACTONE [Concomitant]

REACTIONS (1)
  - COLITIS ISCHAEMIC [None]
